FAERS Safety Report 9337120 (Version 1)
Quarter: 2013Q2

REPORT INFORMATION
  Report Type: Spontaneous
  Country: CA (occurrence: CA)
  Receive Date: 20130607
  Receipt Date: 20130607
  Transmission Date: 20140414
  Serious: Yes (Other)
  Sender: FDA-Public Use
  Company Number: CA-TEVA-410699USA

PATIENT
  Age: 65 Year
  Sex: Female
  Weight: 59.02 kg

DRUGS (4)
  1. NV-CLINDAMYCIN CAPSULES 150MG [Suspect]
     Dosage: 1200 MILLIGRAM DAILY;
     Route: 065
  2. NV-CLINDAMYCIN CAPSULES 150MG [Suspect]
     Dosage: 600 MILLIGRAM DAILY;
     Route: 065
  3. SYNTHROID [Concomitant]
  4. ZOPICLONE [Concomitant]

REACTIONS (8)
  - Asthenia [Not Recovered/Not Resolved]
  - Blood pressure decreased [Not Recovered/Not Resolved]
  - Clostridial infection [Not Recovered/Not Resolved]
  - Dehydration [Not Recovered/Not Resolved]
  - Diarrhoea [Not Recovered/Not Resolved]
  - Heart rate increased [Not Recovered/Not Resolved]
  - Muscle spasms [Not Recovered/Not Resolved]
  - Peripheral coldness [Not Recovered/Not Resolved]
